FAERS Safety Report 13724532 (Version 2)
Quarter: 2017Q3

REPORT INFORMATION
  Report Type: Spontaneous
  Country: US (occurrence: US)
  Receive Date: 20170706
  Receipt Date: 20170710
  Transmission Date: 20171127
  Serious: Yes (Death, Life-Threatening, Hospitalization, Other)
  Sender: FDA-Public Use
  Company Number: US-SAOL THERAPEUTICS-2017SAO01020

PATIENT
  Sex: Female

DRUGS (3)
  1. CLONIDINE. [Suspect]
     Active Substance: CLONIDINE
     Route: 037
  2. MORPHINE [Suspect]
     Active Substance: MORPHINE
     Route: 037
  3. BACLOFEN. [Suspect]
     Active Substance: BACLOFEN
     Indication: SPINAL PAIN
     Route: 037

REACTIONS (8)
  - Drug withdrawal syndrome [Unknown]
  - Cardiac disorder [Unknown]
  - Pain [Unknown]
  - Agitation [Unknown]
  - Death [Fatal]
  - Confusional state [Unknown]
  - Multiple organ dysfunction syndrome [Unknown]
  - Complication associated with device [Unknown]

NARRATIVE: CASE EVENT DATE: 201706
